FAERS Safety Report 5845654-8 (Version None)
Quarter: 2008Q3

REPORT INFORMATION
  Report Type: 
  Country: None (occurrence: None)
  Receive Date: 20080731
  Receipt Date: 20080529
  Transmission Date: 20090109
  Serious: No
  Sender: FDA-Public Use
  Company Number: US200805006249

PATIENT
  Age: 43 Year
  Sex: Female

DRUGS (3)
  1. BYETTA [Suspect]
     Indication: DIABETES MELLITUS
     Dosage: 5 UG, 2/D, SUBCUTANEOUS
     Route: 058
     Dates: start: 20080523
  2. ACTOS /USA/ (PIOGLITAZONE HYDROCHLORIDE) [Concomitant]
  3. NPH INSULIN (INSULIN INJECTION, ISOPHANE) [Concomitant]

REACTIONS (7)
  - BLOOD GLUCOSE INCREASED [None]
  - HYPOAESTHESIA [None]
  - NASOPHARYNGITIS [None]
  - PAIN IN EXTREMITY [None]
  - THIRST [None]
  - UPPER RESPIRATORY TRACT CONGESTION [None]
  - URINE ODOUR ABNORMAL [None]
